FAERS Safety Report 9833972 (Version 2)
Quarter: 2014Q1

REPORT INFORMATION
  Report Type: Spontaneous
  Country: US (occurrence: US)
  Receive Date: 20140122
  Receipt Date: 20140204
  Transmission Date: 20141002
  Serious: Yes (Other)
  Sender: FDA-Public Use
  Company Number: US-PFIZER INC-2014016583

PATIENT
  Age: 54 Year
  Sex: Male
  Weight: 90.7 kg

DRUGS (3)
  1. DILANTIN [Suspect]
     Indication: TRIGEMINAL NEURALGIA
     Dosage: UNK
  2. TEGRETOL [Suspect]
     Indication: TRIGEMINAL NEURALGIA
     Dosage: UNK
  3. TRAMADOL [Concomitant]
     Indication: PAIN
     Dosage: 50 MG, 1X/DAY

REACTIONS (3)
  - Stupor [Unknown]
  - Feeling abnormal [Unknown]
  - Somnolence [Unknown]
